FAERS Safety Report 9460340 (Version 1)
Quarter: 2013Q3

REPORT INFORMATION
  Report Type: Spontaneous
  Country: US (occurrence: None)
  Receive Date: 20130809
  Receipt Date: 20130809
  Transmission Date: 20140515
  Serious: Yes (Disabling, Other)
  Sender: FDA-Public Use
  Company Number: 149994-1

PATIENT
  Age: 73 Year
  Sex: Male
  Weight: 68 kg

DRUGS (1)
  1. LEUCOVORIN CALCIUM [Suspect]
     Indication: COLORECTAL CANCER METASTATIC
     Dosage: 400MG/M2; 716.0MG IV
     Route: 042
     Dates: start: 20120407, end: 20120521

REACTIONS (9)
  - Neutrophil count decreased [None]
  - Back pain [None]
  - Musculoskeletal pain [None]
  - Spinal column stenosis [None]
  - Pyrexia [None]
  - Fatigue [None]
  - Condition aggravated [None]
  - Cataract [None]
  - Cerebral infarction [None]
